FAERS Safety Report 15574981 (Version 1)
Quarter: 2018Q4

REPORT INFORMATION
  Report Type: Spontaneous
  Country: US (occurrence: US)
  Receive Date: 20181101
  Receipt Date: 20181101
  Transmission Date: 20190205
  Serious: Yes (Life-Threatening, Disabling)
  Sender: FDA-Public Use
  Company Number: None

PATIENT
  Age: 53 Year
  Sex: Female

DRUGS (3)
  1. OCEAN SALINE NASAL SPRAY [Suspect]
     Active Substance: SODIUM CHLORIDE
     Indication: NASAL DRYNESS
     Dosage: ?          OTHER STRENGTH:2 DROPS EACH;OTHER ROUTE:NASAL SPRAY?
     Dates: start: 20170224, end: 20181019
  2. OCEAN SALINE NASAL SPRAY [Suspect]
     Active Substance: SODIUM CHLORIDE
     Indication: SINUSITIS
     Dosage: ?          OTHER STRENGTH:2 DROPS EACH;OTHER ROUTE:NASAL SPRAY?
     Dates: start: 20170224, end: 20181019
  3. OCEAN SALINE NASAL SPRAY [Suspect]
     Active Substance: SODIUM CHLORIDE
     Indication: PROPHYLAXIS
     Dosage: ?          OTHER STRENGTH:2 DROPS EACH;OTHER ROUTE:NASAL SPRAY?
     Dates: start: 20170224, end: 20181019

REACTIONS (7)
  - Productive cough [None]
  - Sputum discoloured [None]
  - Wheezing [None]
  - Sinus disorder [None]
  - Eye disorder [None]
  - Dyspnoea [None]
  - Urinary incontinence [None]

NARRATIVE: CASE EVENT DATE: 20180305
